FAERS Safety Report 17792154 (Version 2)
Quarter: 2022Q2

REPORT INFORMATION
  Report Type: Spontaneous
  Country: GB (occurrence: GB)
  Receive Date: 20200515
  Receipt Date: 20220615
  Transmission Date: 20220721
  Serious: Yes (Hospitalization)
  Sender: FDA-Public Use
  Company Number: GB-MYLANLABS-2020M1048583

PATIENT
  Age: 40 Year
  Sex: Male

DRUGS (5)
  1. FLUOROURACIL [Suspect]
     Active Substance: FLUOROURACIL
     Indication: Colon cancer
     Dosage: UNK; PART OF FOLFOX AND FOLFIRI REGIMEN
  2. IRINOTECAN [Suspect]
     Active Substance: IRINOTECAN
     Indication: Colon cancer
     Dosage: UNK; PART OF FOLFIRI REGIMEN
  3. OXALIPLATIN [Suspect]
     Active Substance: OXALIPLATIN
     Indication: Colon cancer
     Dosage: UNK; PART OF FOLFOX REGIMEN
  4. LEUCOVORIN [Suspect]
     Active Substance: LEUCOVORIN
     Indication: Colon cancer
     Dosage: UNK; PART OF FOLFOX AND FOLFIRI REGIMEN
  5. PANITUMUMAB [Suspect]
     Active Substance: PANITUMUMAB
     Indication: Colon cancer
     Dosage: UNK

REACTIONS (3)
  - Pulmonary sarcoidosis [Recovering/Resolving]
  - Neurosarcoidosis [Recovering/Resolving]
  - Cardiomyopathy [Unknown]
